FAERS Safety Report 7732460-2 (Version None)
Quarter: 2011Q3

REPORT INFORMATION
  Report Type: 
  Country: None (occurrence: None)
  Receive Date: 20110906
  Receipt Date: 20110823
  Transmission Date: 20111222
  Serious: Yes (Hospitalization, Other)
  Sender: FDA-Public Use
  Company Number: SE-ELI_LILLY_AND_COMPANY-SE201108006460

PATIENT
  Sex: Male

DRUGS (1)
  1. OLANZAPINE [Suspect]
     Indication: SCHIZOPHRENIA
     Dosage: 300 MG, EVERY 2 WEEKS
     Dates: start: 20110201

REACTIONS (4)
  - DYSPNOEA [None]
  - HEADACHE [None]
  - GENERAL PHYSICAL HEALTH DETERIORATION [None]
  - ANGINA PECTORIS [None]
